FAERS Safety Report 16190197 (Version 1)
Quarter: 2019Q2

REPORT INFORMATION
  Report Type: Spontaneous
  Country: US (occurrence: US)
  Receive Date: 20190412
  Receipt Date: 20190412
  Transmission Date: 20190711
  Serious: Yes (Hospitalization, Other)
  Sender: FDA-Public Use
  Company Number: US-PFIZER INC-2019151143

PATIENT
  Age: 53 Year
  Sex: Male
  Weight: 77 kg

DRUGS (2)
  1. LYRICA [Suspect]
     Active Substance: PREGABALIN
     Dosage: 50 MG, UNK
  2. LYRICA [Suspect]
     Active Substance: PREGABALIN
     Indication: NERVE DEGENERATION
     Dosage: UNK
     Dates: start: 2018

REACTIONS (9)
  - Myocardial infarction [Unknown]
  - Arrhythmia [Unknown]
  - White blood cell count increased [Unknown]
  - Product use in unapproved indication [Not Recovered/Not Resolved]
  - Platelet count increased [Unknown]
  - Blood pressure decreased [Unknown]
  - Paraesthesia [Unknown]
  - Cerebrovascular accident [Unknown]
  - Seizure [Unknown]

NARRATIVE: CASE EVENT DATE: 2018
